FAERS Safety Report 11737501 (Version 6)
Quarter: 2016Q4

REPORT INFORMATION
  Report Type: Spontaneous
  Country: US (occurrence: US)
  Receive Date: 20151113
  Receipt Date: 20161215
  Transmission Date: 20170206
  Serious: No
  Sender: FDA-Public Use
  Company Number: PHEH2015US023535

PATIENT
  Sex: Female
  Weight: 65.76 kg

DRUGS (4)
  1. ZOFRAN [Suspect]
     Active Substance: ONDANSETRON HYDROCHLORIDE
     Indication: VOMITING IN PREGNANCY
     Dosage: UNK UNK, PRN
     Route: 048
  2. ONDANSETRON [Suspect]
     Active Substance: ONDANSETRON
     Indication: VOMITING IN PREGNANCY
     Dosage: 4 MG, 1 TO 2 TIMES DAILY
     Route: 065
     Dates: start: 20140501
  3. ONDANSETRON [Suspect]
     Active Substance: ONDANSETRON
     Indication: PRODUCT USED FOR UNKNOWN INDICATION
     Route: 048
  4. ONDANSETRON DR REDDY [Suspect]
     Active Substance: ONDANSETRON
     Indication: VOMITING IN PREGNANCY
     Dosage: 4 MG, 1 TO 2 TIMES DAILY
     Route: 065
     Dates: start: 20140417, end: 20140427

REACTIONS (7)
  - Maternal exposure during pregnancy [Unknown]
  - Pain [Unknown]
  - Product use issue [Unknown]
  - Anhedonia [Unknown]
  - Injury [Unknown]
  - Anxiety [Unknown]
  - Emotional distress [Unknown]
